FAERS Safety Report 6823066-8 (Version None)
Quarter: 2010Q3

REPORT INFORMATION
  Report Type: 
  Country: None (occurrence: None)
  Receive Date: 20100702
  Receipt Date: 20100622
  Transmission Date: 20110219
  Serious: Yes (Hospitalization, Other)
  Sender: FDA-Public Use
  Company Number: 230232J10USA

PATIENT
  Age: 60 Year
  Sex: Female

DRUGS (6)
  1. REBIF [Suspect]
     Indication: MULTIPLE SCLEROSIS
     Dosage: 44 MCG, 2 IN 1 WK, SUBCUTANEOUS
     Route: 058
     Dates: start: 20030618
  2. ANTIBIOTICS [Concomitant]
  3. ADDERALL  (OBETROL) [Concomitant]
  4. BACLOFEN [Concomitant]
  5. IMITREX [Concomitant]
  6. PREDNISONE [Concomitant]

REACTIONS (1)
  - GASTRIC ULCER HAEMORRHAGE [None]
